FAERS Safety Report 15577417 (Version 1)
Quarter: 2018Q4

REPORT INFORMATION
  Report Type: Spontaneous
  Country: PK (occurrence: PK)
  Receive Date: 20181102
  Receipt Date: 20181102
  Transmission Date: 20190205
  Serious: Yes (Death)
  Sender: FDA-Public Use
  Company Number: PK-STRIDES ARCOLAB LIMITED-2018SP009374

PATIENT
  Age: 79 Year
  Sex: Male

DRUGS (2)
  1. ENTECAVIR. [Suspect]
     Active Substance: ENTECAVIR
     Indication: HEPATITIS B REACTIVATION
     Dosage: UNK
     Route: 065
  2. TENOFOVIR DISOPROXIL FUMARATE. [Suspect]
     Active Substance: TENOFOVIR DISOPROXIL FUMARATE
     Indication: HEPATITIS B REACTIVATION
     Dosage: UNK
     Route: 065

REACTIONS (1)
  - Drug ineffective [Fatal]
